FAERS Safety Report 10200259 (Version 3)
Quarter: 2015Q2

REPORT INFORMATION
  Report Type: Spontaneous
  Country: US (occurrence: US)
  Receive Date: 20140527
  Receipt Date: 20150401
  Transmission Date: 20150821
  Serious: Yes (Death, Hospitalization)
  Sender: FDA-Public Use
  Company Number: US-SA-2014SA005639

PATIENT
  Age: 69 Year
  Sex: Male

DRUGS (18)
  1. BACTRIM DS [Concomitant]
     Active Substance: SULFAMETHOXAZOLE\TRIMETHOPRIM
     Indication: OSTEOMYELITIS
     Dosage: 800-160 MG
     Route: 048
     Dates: start: 20130501, end: 20140111
  2. DURAGESIC [Concomitant]
     Active Substance: FENTANYL
     Dates: end: 20140111
  3. IMMUNOGLOBULIN [Concomitant]
     Active Substance: HUMAN IMMUNOGLOBULIN G
     Indication: HYPOGAMMAGLOBULINAEMIA
     Dates: end: 20140111
  4. VALACICLOVIR [Concomitant]
     Active Substance: VALACYCLOVIR HYDROCHLORIDE
     Dates: end: 20140111
  5. VITAMIN B3 [Concomitant]
     Active Substance: NIACIN
     Dates: end: 20140111
  6. BENADRYL [Concomitant]
     Active Substance: DIPHENHYDRAMINE HYDROCHLORIDE
     Dates: end: 20140111
  7. AMPHOTERICIN B. [Concomitant]
     Active Substance: AMPHOTERICIN B
     Dates: end: 20140111
  8. PANTOPRAZOLE [Concomitant]
     Active Substance: PANTOPRAZOLE SODIUM
     Dates: end: 20140111
  9. NOVOLOG [Concomitant]
     Active Substance: INSULIN ASPART
     Dates: end: 20140111
  10. RESTORIL [Concomitant]
     Active Substance: TEMAZEPAM
     Indication: SLEEP DISORDER
     Route: 048
     Dates: start: 20130501, end: 20140111
  11. VALCYTE [Concomitant]
     Active Substance: VALGANCICLOVIR HYDROCHLORIDE
     Indication: ANTIVIRAL TREATMENT
     Route: 048
     Dates: start: 20130821, end: 20140111
  12. MICAFUNGIN [Concomitant]
     Active Substance: MICAFUNGIN
     Dates: end: 20140111
  13. CAMPATH [Suspect]
     Active Substance: ALEMTUZUMAB
     Indication: MYELODYSPLASTIC SYNDROME
     Dosage: FREQUENCY: 6XMONTH
     Route: 042
     Dates: start: 20130814, end: 20131115
  14. CLARITIN [Concomitant]
     Active Substance: LORATADINE
     Route: 048
     Dates: end: 20140111
  15. TYLENOL [Concomitant]
     Active Substance: ACETAMINOPHEN
     Dates: end: 20140111
  16. VANCOMYCIN [Concomitant]
     Active Substance: VANCOMYCIN
     Dates: end: 20140111
  17. CEFEPIME [Concomitant]
     Active Substance: CEFEPIME\CEFEPIME HYDROCHLORIDE
     Dates: end: 20140111
  18. TRAMADOL [Concomitant]
     Active Substance: TRAMADOL
     Indication: ARTHRALGIA
     Dosage: Q4-6 HR PRN
     Route: 048
     Dates: start: 20131118, end: 20140111

REACTIONS (3)
  - Zygomycosis [Fatal]
  - Arthritis infective [Recovered/Resolved]
  - Death [Fatal]

NARRATIVE: CASE EVENT DATE: 20131202
